FAERS Safety Report 8125185-5 (Version None)
Quarter: 2012Q1

REPORT INFORMATION
  Report Type: 
  Country: None (occurrence: None)
  Receive Date: 20120209
  Receipt Date: 20120127
  Transmission Date: 20120608
  Serious: Yes (Hospitalization)
  Sender: FDA-Public Use
  Company Number: TR-UCBSA-050485

PATIENT
  Age: 16 Year
  Sex: Female

DRUGS (3)
  1. SODIUM VALPROAT [Concomitant]
     Indication: LAFORA'S MYOCLONIC EPILEPSY
  2. LEVETIRACETAM [Suspect]
     Indication: LAFORA'S MYOCLONIC EPILEPSY
     Dosage: DOSE:1000MGX2
  3. SODIUM VALPROAT [Concomitant]
     Indication: EPILEPSY

REACTIONS (1)
  - PANCYTOPENIA [None]
